FAERS Safety Report 6581816-2 (Version None)
Quarter: 2010Q1

REPORT INFORMATION
  Report Type: 
  Country: None (occurrence: None)
  Receive Date: 20100215
  Receipt Date: 20100211
  Transmission Date: 20100710
  Serious: Yes (Life-Threatening, Hospitalization)
  Sender: FDA-Public Use
  Company Number: PHHY2010DE08155

PATIENT
  Sex: Female
  Weight: 89 kg

DRUGS (6)
  1. DIOVAN TRIPLE DTR+ [Suspect]
     Indication: HYPERTENSION
     Dosage: 1 DF (10/320/25 MG) DAILY
     Route: 048
     Dates: start: 20100123, end: 20100201
  2. TORSEMIDE [Concomitant]
     Indication: HYPERTENSION
     Dosage: 5 MG PER DAY
     Route: 048
     Dates: start: 20100120
  3. SIMVASTATIN [Concomitant]
     Indication: HYPERCHOLESTEROLAEMIA
     Dosage: 20 MG PER DAY
     Route: 048
     Dates: start: 20030614
  4. NATRILIX - SLOW RELEASE [Concomitant]
     Indication: HYPERTENSION
     Dosage: 15 MG PER DAY
     Route: 048
     Dates: start: 20000111
  5. METFORMIN [Concomitant]
     Indication: DIABETES MELLITUS
     Dosage: 850 MG, BID
     Route: 048
     Dates: start: 20011116
  6. FEXOFENADINE [Concomitant]
     Indication: HYPERSENSITIVITY
     Dosage: 180 MG PER DAY
     Route: 048
     Dates: start: 20010129

REACTIONS (5)
  - ACUTE MYOCARDIAL INFARCTION [None]
  - BLOOD PRESSURE INCREASED [None]
  - CORONARY ANGIOPLASTY [None]
  - OEDEMA PERIPHERAL [None]
  - STENT PLACEMENT [None]
